FAERS Safety Report 24785495 (Version 2)
Quarter: 2025Q1

REPORT INFORMATION
  Report Type: Report from Study
  Country: CA (occurrence: CA)
  Receive Date: 20241228
  Receipt Date: 20250311
  Transmission Date: 20250409
  Serious: Yes (Other)
  Sender: TAKEDA
  Company Number: CA-TAKEDA-2024TUS126602

PATIENT
  Sex: Male

DRUGS (8)
  1. VEDOLIZUMAB [Suspect]
     Active Substance: VEDOLIZUMAB
     Indication: Colitis ulcerative
  2. VEDOLIZUMAB [Suspect]
     Active Substance: VEDOLIZUMAB
  3. BUDESONIDE [Concomitant]
     Active Substance: BUDESONIDE
  4. ENTOCORT [Concomitant]
     Active Substance: BUDESONIDE
  5. Cortiment [Concomitant]
  6. APIXABAN [Concomitant]
     Active Substance: APIXABAN
  7. PANTOPRAZOLE SODIUM [Concomitant]
     Active Substance: PANTOPRAZOLE SODIUM
  8. ROSUVASTATIN [Concomitant]
     Active Substance: ROSUVASTATIN

REACTIONS (3)
  - Gastrointestinal disorder [Unknown]
  - Immunodeficiency [Not Recovered/Not Resolved]
  - Renal disorder [Not Recovered/Not Resolved]
